FAERS Safety Report 7417437-9 (Version None)
Quarter: 2011Q2

REPORT INFORMATION
  Report Type: 
  Country: None (occurrence: None)
  Receive Date: 20110412
  Receipt Date: 20110412
  Transmission Date: 20111010
  Serious: Yes (Other)
  Sender: FDA-Public Use
  Company Number: None

PATIENT
  Age: 47 Year
  Sex: Female

DRUGS (1)
  1. RITE AID BRAND BABY POWDER [Suspect]
     Dosage: OZ ? (RETURNED)
     Dates: start: 20110201, end: 20110301

REACTIONS (3)
  - INFLAMMATION [None]
  - PRURITUS [None]
  - SHOCK [None]
